FAERS Safety Report 15100149 (Version 2)
Quarter: 2018Q3

REPORT INFORMATION
  Report Type: Spontaneous
  Country: JP (occurrence: JP)
  Receive Date: 20180703
  Receipt Date: 20180705
  Transmission Date: 20181010
  Serious: Yes (Death, Other)
  Sender: FDA-Public Use
  Company Number: JP-ROCHE-2148202

PATIENT
  Age: 72 Year
  Sex: Male

DRUGS (1)
  1. XELODA [Suspect]
     Active Substance: CAPECITABINE
     Indication: COLON CANCER
     Route: 048

REACTIONS (3)
  - Colon cancer [Fatal]
  - Metastases to bone marrow [Unknown]
  - Blood bilirubin increased [Unknown]
